FAERS Safety Report 7302294-1 (Version None)
Quarter: 2011Q1

REPORT INFORMATION
  Report Type: 
  Country: None (occurrence: None)
  Receive Date: 20110218
  Receipt Date: 20110207
  Transmission Date: 20110831
  Serious: Yes (Hospitalization)
  Sender: FDA-Public Use
  Company Number: NL-GENENTECH-308588

PATIENT
  Sex: Female
  Weight: 39 kg

DRUGS (18)
  1. RITUXAN [Suspect]
     Indication: DIFFUSE LARGE B-CELL LYMPHOMA
     Dosage: 500 MG, UNK
     Route: 042
     Dates: start: 20101007
  2. NEUPOGEN [Suspect]
     Dosage: 6 MG, UNK
     Route: 058
     Dates: start: 20101105
  3. PREDNISONE [Suspect]
     Dosage: 100 MG, UNK
     Route: 048
     Dates: start: 20101104
  4. NEUPOGEN [Suspect]
     Dosage: 6 MG, UNK
     Route: 058
     Dates: start: 20101203
  5. CYCLOPHOSPHAMIDE [Suspect]
     Indication: DIFFUSE LARGE B-CELL LYMPHOMA
     Dosage: 1072.5 MG, UNK
     Route: 042
     Dates: start: 20101007
  6. VINCRISTINE [Suspect]
     Dosage: 2 MG, UNK
     Route: 042
     Dates: start: 20101104
  7. RITUXAN [Suspect]
     Dosage: 500 MG, UNK
     Route: 042
     Dates: start: 20101104
  8. CYCLOPHOSPHAMIDE [Suspect]
     Dosage: 1012 MG, UNK
     Route: 042
     Dates: start: 20101104
  9. CYCLOPHOSPHAMIDE [Suspect]
     Dosage: 945 MG, UNK
     Route: 042
     Dates: start: 20101202
  10. DOXORUBICIN HCL [Suspect]
     Indication: DIFFUSE LARGE B-CELL LYMPHOMA
     Dosage: 71.5 MG, UNK
     Route: 042
     Dates: start: 20101007
  11. PREDNISONE [Suspect]
     Indication: DIFFUSE LARGE B-CELL LYMPHOMA
     Dosage: 100 MG, UNK
     Route: 048
     Dates: start: 20101007
  12. ALLOPURINOL [Concomitant]
     Indication: PROPHYLAXIS
     Dosage: 300 MG, UNK
     Route: 048
     Dates: start: 20101007
  13. RITUXAN [Suspect]
     Dosage: 500 MG, UNK
     Route: 042
     Dates: start: 20101202
  14. PREDNISONE [Suspect]
     Dosage: 100 MG, UNK
     Route: 048
     Dates: start: 20101202
  15. DOXORUBICIN HCL [Suspect]
     Dosage: 67.5 MG, UNK
     Route: 042
     Dates: start: 20101104
  16. VINCRISTINE [Suspect]
     Indication: DIFFUSE LARGE B-CELL LYMPHOMA
     Dosage: 2 MG, UNK
     Route: 042
     Dates: start: 20101007
  17. VINCRISTINE [Suspect]
     Dosage: 2 MG, UNK
     Route: 042
     Dates: start: 20101202
  18. NEUPOGEN [Suspect]
     Indication: DIFFUSE LARGE B-CELL LYMPHOMA
     Dosage: 6 MG, UNK
     Route: 058
     Dates: start: 20101008

REACTIONS (3)
  - DEHYDRATION [None]
  - ANAEMIA [None]
  - DIARRHOEA [None]
